FAERS Safety Report 10977258 (Version 1)
Quarter: 2015Q2

REPORT INFORMATION
  Report Type: Spontaneous
  Country: JP (occurrence: JP)
  Receive Date: 20150402
  Receipt Date: 20150402
  Transmission Date: 20150821
  Serious: Yes (Other)
  Sender: FDA-Public Use
  Company Number: JP-ACCORD-029556

PATIENT
  Age: 72 Year
  Sex: Female

DRUGS (2)
  1. FLUOROURACIL. [Suspect]
     Active Substance: FLUOROURACIL
     Indication: ANAL SQUAMOUS CELL CARCINOMA
     Dosage: DAY (1-5, DAY 29-33)
  2. CISPLATIN. [Suspect]
     Active Substance: CISPLATIN
     Indication: ANAL SQUAMOUS CELL CARCINOMA
     Dosage: 80 MG/M2 (DAY 1, 29)

REACTIONS (7)
  - Neutropenia [Unknown]
  - Vomiting [Unknown]
  - Mouth swelling [Unknown]
  - Nausea [Unknown]
  - Dermatitis [Unknown]
  - Urinary retention [Unknown]
  - Diarrhoea [Unknown]
